FAERS Safety Report 21902780 (Version 1)
Quarter: 2023Q1

REPORT INFORMATION
  Report Type: Spontaneous
  Country: US (occurrence: None)
  Receive Date: 20230123
  Receipt Date: 20230123
  Transmission Date: 20230417
  Serious: No
  Sender: FDA-Public Use
  Company Number: None

PATIENT
  Sex: Female

DRUGS (1)
  1. SKYRIZI [Suspect]
     Active Substance: RISANKIZUMAB-RZAA
     Indication: Psoriatic arthropathy
     Dosage: 150MG  EVERY 12 WEEKS; UNDER THE SKIN?
     Route: 058
     Dates: start: 20220915

REACTIONS (2)
  - Drug ineffective [None]
  - Therapeutic product effect incomplete [None]
